FAERS Safety Report 9197419 (Version 1)
Quarter: 2013Q1

REPORT INFORMATION
  Report Type: Report from Study
  Country: KR (occurrence: KR)
  Receive Date: 20130328
  Receipt Date: 20130328
  Transmission Date: 20140127
  Serious: Yes (Hospitalization, Other)
  Sender: FDA-Public Use
  Company Number: KR-GLAXOSMITHKLINE-B0399432A

PATIENT
  Age: 66 Year
  Sex: Female
  Weight: 53.2 kg

DRUGS (4)
  1. TOPOTECAN [Suspect]
     Indication: SMALL CELL LUNG CANCER
     Dosage: 1.7MG PER DAY
     Route: 042
     Dates: start: 20001221, end: 20001225
  2. TOPOTECAN [Suspect]
     Indication: SMALL CELL LUNG CANCER
     Route: 042
     Dates: start: 20001114, end: 20001118
  3. ONDANSETRON [Concomitant]
  4. CIPROFLOXACIN [Concomitant]

REACTIONS (5)
  - Pneumonia [Not Recovered/Not Resolved]
  - Flank pain [Recovered/Resolved]
  - Febrile neutropenia [Not Recovered/Not Resolved]
  - Leukopenia [Not Recovered/Not Resolved]
  - Thrombocytopenia [Not Recovered/Not Resolved]
